FAERS Safety Report 9665290 (Version 3)
Quarter: 2013Q4

REPORT INFORMATION
  Report Type: Spontaneous
  Country: US (occurrence: US)
  Receive Date: 20131101
  Receipt Date: 20131114
  Transmission Date: 20140711
  Serious: Yes (Life-Threatening, Disabling)
  Sender: FDA-Public Use
  Company Number: US-009507513-1310USA015337

PATIENT
  Age: 46 Year
  Sex: Female

DRUGS (1)
  1. EMEND [Suspect]
     Dosage: ONE DOSE
     Route: 048
     Dates: start: 20131025

REACTIONS (3)
  - Pharyngeal oedema [Unknown]
  - Erythema [Unknown]
  - Flushing [Unknown]
